FAERS Safety Report 6551200-6 (Version None)
Quarter: 2010Q1

REPORT INFORMATION
  Report Type: 
  Country: None (occurrence: None)
  Receive Date: 20100121
  Receipt Date: 20100107
  Transmission Date: 20100710
  Serious: Yes (Hospitalization, Other)
  Sender: FDA-Public Use
  Company Number: 2010SP000142

PATIENT
  Age: 57 Year
  Sex: Female

DRUGS (9)
  1. ALVESCO [Suspect]
     Indication: ASTHMA
     Dosage: 200 UG; BID; INHALATION
     Route: 055
     Dates: start: 20090626, end: 20090706
  2. ALVESCO [Suspect]
     Indication: ASTHMA
     Dosage: 200 UG; BID; INHALATION
     Route: 055
     Dates: start: 20090726, end: 20090731
  3. REACTINE /00884301/ [Concomitant]
  4. SINGULAIR [Concomitant]
  5. QUERCETIN [Concomitant]
  6. MULTI-VITAMINS [Concomitant]
  7. VITAMIN B12 /00056201/ [Concomitant]
  8. VITAMIN A [Concomitant]
  9. GLUCOSAMINE [Concomitant]

REACTIONS (6)
  - ABNORMAL DREAMS [None]
  - DYSGEUSIA [None]
  - DYSPHONIA [None]
  - HALLUCINATION [None]
  - NIGHTMARE [None]
  - THROAT IRRITATION [None]
